FAERS Safety Report 6543782-5 (Version None)
Quarter: 2010Q1

REPORT INFORMATION
  Report Type: 
  Country: None (occurrence: None)
  Receive Date: 20100120
  Receipt Date: 20090731
  Transmission Date: 20100710
  Serious: No
  Sender: FDA-Public Use
  Company Number: US-BRISTOL-MYERS SQUIBB COMPANY-14727713

PATIENT
  Age: 65 Year
  Sex: Female

DRUGS (4)
  1. CISPLATIN [Suspect]
     Indication: LUNG NEOPLASM MALIGNANT
     Route: 065
     Dates: start: 20090401
  2. ALIMTA [Suspect]
     Indication: LUNG NEOPLASM MALIGNANT
     Route: 065
     Dates: start: 20090401
  3. ZOMETA [Suspect]
     Indication: METASTASES TO BONE
     Route: 065
     Dates: start: 20090401
  4. NICOTINE POLYACRILEX [Suspect]
     Indication: NICOTINE DEPENDENCE
     Dosage: NICOTINE POLYACRILEX MINT:GUM 4MG TAKEN 12 PIECES LOT NO:4EM07132 EXP DATE:DEC2009 TAKEN 16JUL09
     Route: 048
     Dates: start: 20040101

REACTIONS (3)
  - BLOOD CREATININE INCREASED [None]
  - INTENTIONAL DRUG MISUSE [None]
  - NICOTINE DEPENDENCE [None]
